FAERS Safety Report 25263126 (Version 1)
Quarter: 2025Q2

REPORT INFORMATION
  Report Type: Spontaneous
  Country: IT (occurrence: IT)
  Receive Date: 20250502
  Receipt Date: 20250502
  Transmission Date: 20250717
  Serious: Yes (Hospitalization, Other)
  Sender: AZURITY PHARMACEUTICALS
  Company Number: IT-AZURITY PHARMACEUTICALS, INC.-AZR202504-001159

PATIENT
  Age: 37 Year
  Sex: Male

DRUGS (3)
  1. METHYLPREDNISOLONE ACETATE [Suspect]
     Active Substance: METHYLPREDNISOLONE ACETATE
     Indication: Myelin oligodendrocyte glycoprotein antibody-associated disease
     Route: 042
  2. PREDNISONE [Suspect]
     Active Substance: PREDNISONE
     Indication: Myelin oligodendrocyte glycoprotein antibody-associated disease
     Dosage: 50 MILLIGRAM, DAILY
     Route: 048
  3. PREDNISONE [Suspect]
     Active Substance: PREDNISONE
     Route: 048

REACTIONS (1)
  - Cerebral venous thrombosis [Recovered/Resolved]
